FAERS Safety Report 17054154 (Version 2)
Quarter: 2019Q4

REPORT INFORMATION
  Report Type: Report from Study
  Country: DE (occurrence: DE)
  Receive Date: 20191120
  Receipt Date: 20191226
  Transmission Date: 20200122
  Serious: Yes (Other)
  Sender: FDA-Public Use
  Company Number: NVSC2019DE040140

PATIENT
  Sex: Female
  Weight: 83 kg

DRUGS (7)
  1. ZOMETA [Suspect]
     Active Substance: ZOLEDRONIC ACID
     Indication: METASTASES TO BONE
     Dosage: 3 MG, Q4W
     Route: 042
     Dates: start: 20181203, end: 20190805
  2. IBANDRONATE SODIUM. [Suspect]
     Active Substance: IBANDRONATE SODIUM
     Indication: METASTASES TO BONE
     Dosage: 4 MG, Q4W
     Route: 042
     Dates: start: 20190902
  3. KISQALI [Suspect]
     Active Substance: RIBOCICLIB
     Dosage: 400 MG, QD (SCHEMA 21 DAYS INTAKE, 7 DAYS PAUSE)
     Route: 048
     Dates: start: 20190308, end: 20190331
  4. LETROZOLE. [Suspect]
     Active Substance: LETROZOLE
     Indication: BREAST CANCER METASTATIC
     Dosage: 2.5 MG, QD
     Route: 048
     Dates: start: 20181204
  5. KISQALI [Suspect]
     Active Substance: RIBOCICLIB
     Indication: BREAST CANCER METASTATIC
     Dosage: 600 MG, Q4W (D1-21)
     Route: 048
     Dates: start: 20181204, end: 20181226
  6. KISQALI [Suspect]
     Active Substance: RIBOCICLIB
     Dosage: 400 MG, Q4W (D1-21)
     Route: 048
     Dates: start: 20190107, end: 20190305
  7. KISQALI [Suspect]
     Active Substance: RIBOCICLIB
     Dosage: 200 MG, QD  (SCHEMA 21 DAYS INTAKE, 7 DAYS PAUSE)
     Route: 048
     Dates: start: 20190405

REACTIONS (3)
  - Osteonecrosis [Not Recovered/Not Resolved]
  - Swelling [Unknown]
  - Pain in jaw [Unknown]

NARRATIVE: CASE EVENT DATE: 20190909
